FAERS Safety Report 7375926-X (Version None)
Quarter: 2011Q1

REPORT INFORMATION
  Report Type: 
  Country: None (occurrence: None)
  Receive Date: 20110325
  Receipt Date: 20110317
  Transmission Date: 20110831
  Serious: Yes (Hospitalization)
  Sender: FDA-Public Use
  Company Number: Z0008487A

PATIENT
  Sex: Male
  Weight: 68 kg

DRUGS (2)
  1. GW642444 [Suspect]
     Indication: CHRONIC OBSTRUCTIVE PULMONARY DISEASE
     Dosage: 25MCG PER DAY
     Route: 055
     Dates: start: 20100810
  2. ADVAIR DISKUS 100/50 [Suspect]
     Indication: CHRONIC OBSTRUCTIVE PULMONARY DISEASE
     Route: 048
     Dates: start: 20100715, end: 20100810

REACTIONS (1)
  - CELLULITIS [None]
